FAERS Safety Report 22055359 (Version 1)
Quarter: 2023Q1

REPORT INFORMATION
  Report Type: Spontaneous
  Country: DE (occurrence: DE)
  Receive Date: 20230302
  Receipt Date: 20230302
  Transmission Date: 20230417
  Serious: Yes (Other)
  Sender: FDA-Public Use
  Company Number: DE-002147023-NVSC2023DE046428

PATIENT
  Sex: Female

DRUGS (2)
  1. COSENTYX [Suspect]
     Active Substance: SECUKINUMAB
     Indication: Spinal osteoarthritis
     Dosage: 150 MG
     Route: 065
     Dates: start: 2022, end: 2022
  2. COSENTYX [Suspect]
     Active Substance: SECUKINUMAB
     Indication: Sacroiliitis
     Dosage: 300 MG, QMO
     Route: 065
     Dates: start: 20221104

REACTIONS (4)
  - Rheumatoid arthritis [Unknown]
  - Back pain [Unknown]
  - Aphthous ulcer [Unknown]
  - Product use in unapproved indication [Unknown]
